FAERS Safety Report 6534202-5 (Version None)
Quarter: 2010Q1

REPORT INFORMATION
  Report Type: 
  Country: None (occurrence: None)
  Receive Date: 20100112
  Receipt Date: 20100106
  Transmission Date: 20100710
  Serious: Yes (Other)
  Sender: FDA-Public Use
  Company Number: US-TEVA-219005USA

PATIENT
  Age: 35 Year
  Sex: Male

DRUGS (1)
  1. PROPOFOL [Suspect]
     Indication: INTRACRANIAL PRESSURE INCREASED
     Dosage: 100 MCG/KG/MIN

REACTIONS (1)
  - PROPOFOL INFUSION SYNDROME [None]
